FAERS Safety Report 26007770 (Version 1)
Quarter: 2025Q4

REPORT INFORMATION
  Report Type: Spontaneous
  Country: US (occurrence: US)
  Receive Date: 20251106
  Receipt Date: 20251106
  Transmission Date: 20260118
  Serious: Yes (Other)
  Sender: AMGEN
  Company Number: US-AMGEN-USASP2025218240

PATIENT

DRUGS (1)
  1. PREDNISONE [Suspect]
     Active Substance: PREDNISONE
     Indication: Hepato-lenticular degeneration
     Dosage: UNK
     Route: 065

REACTIONS (15)
  - Seizure [Unknown]
  - Delirium [Unknown]
  - Psychotic disorder [Unknown]
  - Neuromyopathy [Unknown]
  - Vascular dementia [Unknown]
  - Affective disorder [Unknown]
  - Extrapyramidal disorder [Unknown]
  - Anxiety [Unknown]
  - Stress [Unknown]
  - Cognitive disorder [Unknown]
  - Insomnia [Unknown]
  - Radiculopathy [Unknown]
  - Dyskinesia [Unknown]
  - Movement disorder [Unknown]
  - Tremor [Unknown]
